FAERS Safety Report 16343679 (Version 1)
Quarter: 2019Q2

REPORT INFORMATION
  Report Type: Spontaneous
  Country: US (occurrence: US)
  Receive Date: 20190417
  Receipt Date: 20190417
  Transmission Date: 20190711
  Serious: No
  Sender: FDA-Public Use
  Company Number: None

PATIENT
  Age: 33 Year
  Sex: Female

DRUGS (1)
  1. BENLYSTA [Suspect]
     Active Substance: BELIMUMAB
     Indication: POLYARTHRITIS
     Route: 058
     Dates: start: 201903

REACTIONS (4)
  - Fatigue [None]
  - Nasopharyngitis [None]
  - Cough [None]
  - Oropharyngeal pain [None]
